FAERS Safety Report 10055643 (Version 1)
Quarter: 2014Q2

REPORT INFORMATION
  Report Type: Spontaneous
  Country: US (occurrence: None)
  Receive Date: 20140402
  Receipt Date: 20140402
  Transmission Date: 20141212
  Serious: Yes (Disabling)
  Sender: FDA-Public Use
  Company Number: None

PATIENT
  Age: 27 Year
  Sex: Female
  Weight: 62.6 kg

DRUGS (1)
  1. SOLODYN [Suspect]
     Indication: ACNE
     Dosage: 1, ONCE DAILY, TAKEN BY MOUTH
     Route: 048
     Dates: start: 20140110, end: 20140217

REACTIONS (9)
  - Stomatitis [None]
  - Tinnitus [None]
  - Hypoacusis [None]
  - Headache [None]
  - Abdominal pain [None]
  - Muscle spasms [None]
  - Vaginal haemorrhage [None]
  - Haematochezia [None]
  - Rash [None]
